FAERS Safety Report 4824694-1 (Version None)
Quarter: 2005Q4

REPORT INFORMATION
  Report Type: 
  Country: None (occurrence: None)
  Receive Date: 20051012
  Receipt Date: 20050908
  Transmission Date: 20060501
  Serious: No
  Sender: FDA-Public Use
  Company Number: 2005S1000194

PATIENT
  Age: 22 Year
  Weight: 130 kg

DRUGS (3)
  1. CUBICIN [Suspect]
     Indication: PERIUMBILICAL ABSCESS
     Dosage: 480 MG; Q24H; IV
     Route: 042
     Dates: start: 20050812, end: 20050101
  2. VANCOMYCIN [Concomitant]
  3. FENTANYL [Concomitant]

REACTIONS (8)
  - BLOOD POTASSIUM DECREASED [None]
  - CHILLS [None]
  - OEDEMA [None]
  - PAIN IN EXTREMITY [None]
  - PLATELET COUNT DECREASED [None]
  - RASH [None]
  - RED BLOOD CELL COUNT DECREASED [None]
  - WHITE BLOOD CELL COUNT DECREASED [None]
